FAERS Safety Report 11774634 (Version 1)
Quarter: 2015Q4

REPORT INFORMATION
  Report Type: Spontaneous
  Country: US (occurrence: US)
  Receive Date: 20151124
  Receipt Date: 20151124
  Transmission Date: 20160304
  Serious: No
  Sender: FDA-Public Use
  Company Number: US-PURDUE-USA-2015-0126043

PATIENT
  Sex: Female

DRUGS (2)
  1. HYSINGLA ER [Suspect]
     Active Substance: HYDROCODONE BITARTRATE
     Dosage: 20 MG, DAILY
     Route: 048
     Dates: start: 20150818, end: 20150918
  2. HYSINGLA ER [Suspect]
     Active Substance: HYDROCODONE BITARTRATE
     Indication: CYSTITIS INTERSTITIAL
     Dosage: 30 MG, DAILY
     Route: 048
     Dates: start: 20150918

REACTIONS (3)
  - Drug effect variable [Unknown]
  - Pain [Recovered/Resolved]
  - Therapeutic response delayed [Unknown]
